FAERS Safety Report 6027257-8 (Version None)
Quarter: 2009Q1

REPORT INFORMATION
  Report Type: 
  Country: None (occurrence: None)
  Receive Date: 20090102
  Receipt Date: 20090102
  Transmission Date: 20090719
  Serious: Yes (Other)
  Sender: FDA-Public Use
  Company Number: None

PATIENT
  Age: 39 Year
  Sex: Female

DRUGS (2)
  1. LEVETIRACETAM [Suspect]
     Indication: EPILEPSY
     Dosage: 2000MG BID PO
     Route: 048
     Dates: end: 20081201
  2. KEPPRA [Concomitant]

REACTIONS (3)
  - FATIGUE [None]
  - NAUSEA [None]
  - PRODUCT QUALITY ISSUE [None]
